FAERS Safety Report 8831366 (Version 1)
Quarter: 2012Q4

REPORT INFORMATION
  Report Type: 
  Country: VE (occurrence: VE)
  Receive Date: 20121009
  Receipt Date: 20121009
  Transmission Date: 20130627
  Serious: Yes (Hospitalization, Other)
  Sender: FDA-Public Use
  Company Number: VE-ABBOTT-12P-178-0991020-00

PATIENT
  Age: 16 Year
  Sex: Male

DRUGS (4)
  1. SEVORANE [Suspect]
     Indication: MAINTENANCE OF ANAESTHESIA
     Route: 055
     Dates: start: 201209, end: 201209
  2. MIDALOZAM [Concomitant]
     Indication: ANAESTHESIA
     Dates: start: 201209, end: 201209
  3. PROPOFOL [Concomitant]
     Indication: ANAESTHESIA
     Dates: start: 201209, end: 201209
  4. O2 + NO2 [Concomitant]
     Indication: ANAESTHESIA
     Dates: start: 201209, end: 201209

REACTIONS (2)
  - Delayed recovery from anaesthesia [Unknown]
  - Necrosis [Unknown]
